FAERS Safety Report 6958156-2 (Version None)
Quarter: 2010Q3

REPORT INFORMATION
  Report Type: 
  Country: None (occurrence: None)
  Receive Date: 20100831
  Receipt Date: 20100819
  Transmission Date: 20110219
  Serious: Yes (Death)
  Sender: FDA-Public Use
  Company Number: US-PFIZER INC-2010075013

PATIENT
  Sex: Male
  Weight: 78.912 kg

DRUGS (4)
  1. SUTENT [Suspect]
     Indication: LENTIGO
     Dosage: 37.5 MG, DAILY
     Route: 048
     Dates: start: 20100518, end: 20100613
  2. SYNTHROID [Concomitant]
     Indication: THYROID OPERATION
     Dosage: UNK
  3. PRILOSEC [Concomitant]
     Dosage: UNK
  4. ZOMETA [Concomitant]
     Dosage: UNK

REACTIONS (1)
  - RENAL FAILURE [None]
